FAERS Safety Report 8905565 (Version 1)
Quarter: 2012Q4

REPORT INFORMATION
  Report Type: 
  Country: DE (occurrence: DE)
  Receive Date: 20121111
  Receipt Date: 20121111
  Transmission Date: 20130627
  Serious: Yes (Other)
  Sender: FDA-Public Use
  Company Number: PHHY2012DE103385

PATIENT

DRUGS (1)
  1. CICLOSPORIN [Suspect]
     Indication: PSORIASIS

REACTIONS (2)
  - Neoplasm skin [Unknown]
  - Renal disorder [Unknown]
